FAERS Safety Report 8916238 (Version 1)
Quarter: 2012Q4

REPORT INFORMATION
  Report Type: 
  Country: FR (occurrence: FR)
  Receive Date: 20121120
  Receipt Date: 20121120
  Transmission Date: 20130627
  Serious: Yes (Other)
  Sender: FDA-Public Use
  Company Number: FR-ELI_LILLY_AND_COMPANY-FR201211001629

PATIENT
  Age: 26 Year
  Sex: Female

DRUGS (9)
  1. ZYPREXA [Suspect]
     Dosage: 20 mg, qd
     Route: 048
     Dates: start: 20120725
  2. LARGACTIL [Concomitant]
     Dosage: 650 mg, qd
     Dates: start: 201206, end: 20120725
  3. LARGACTIL [Concomitant]
     Dosage: 200 mg, UNK
     Dates: start: 20120725
  4. THERALENE [Concomitant]
     Dosage: 50 mg, qd
     Dates: start: 20120725
  5. SERESTA [Concomitant]
     Dosage: 30 mg, qd
     Dates: start: 20120725
  6. RISPERDAL [Concomitant]
     Dosage: 12 mg, qd
     Dates: start: 20120630, end: 20120725
  7. LITHIUM [Concomitant]
     Dosage: UNK
  8. LEPTICUR [Concomitant]
     Dosage: UNK
     Dates: start: 20120630, end: 20120725
  9. LOXAPAC [Concomitant]
     Dosage: 600 mg, tid
     Dates: start: 20120725

REACTIONS (3)
  - Breech presentation [Recovered/Resolved]
  - Foetal growth restriction [Unknown]
  - Exposure during pregnancy [Recovered/Resolved]
